FAERS Safety Report 8247111-0 (Version None)
Quarter: 2012Q1

REPORT INFORMATION
  Report Type: 
  Country: None (occurrence: None)
  Receive Date: 20120330
  Receipt Date: 20120326
  Transmission Date: 20120608
  Serious: Yes (Death, Hospitalization, Other)
  Sender: FDA-Public Use
  Company Number: RO-ABBOTT-11P-135-0844802-00

PATIENT
  Sex: Female
  Weight: 52 kg

DRUGS (1)
  1. HUMIRA [Suspect]
     Indication: CROHN'S DISEASE
     Route: 058
     Dates: start: 20101101, end: 20110605

REACTIONS (3)
  - POST PROCEDURAL PULMONARY EMBOLISM [None]
  - INTESTINAL STENOSIS [None]
  - CARDIO-RESPIRATORY ARREST [None]
